FAERS Safety Report 15497976 (Version 1)
Quarter: 2018Q4

REPORT INFORMATION
  Report Type: Spontaneous
  Country: US (occurrence: US)
  Receive Date: 20181005
  Receipt Date: 20181005
  Transmission Date: 20190205
  Serious: Yes (Disabling)
  Sender: FDA-Public Use
  Company Number: None

PATIENT
  Age: 32 Year
  Sex: Female
  Weight: 56.25 kg

DRUGS (6)
  1. PAXIL [Concomitant]
     Active Substance: PAROXETINE HYDROCHLORIDE
  2. ONE A DAY WOMEN^S [Concomitant]
     Active Substance: MINERALS\VITAMINS
  3. HALCION [Concomitant]
     Active Substance: TRIAZOLAM
  4. LAMICTAL [Suspect]
     Active Substance: LAMOTRIGINE
     Indication: DEPRESSION
     Dosage: ?          QUANTITY:60 DF DOSAGE FORM;?
     Route: 048
  5. WELLBUTRIN [Concomitant]
     Active Substance: BUPROPION HYDROCHLORIDE
  6. TRI-SPRENTAC [Concomitant]

REACTIONS (21)
  - Insomnia [None]
  - Chest discomfort [None]
  - Dysphagia [None]
  - Abdominal distension [None]
  - Memory impairment [None]
  - Headache [None]
  - Dyspnoea [None]
  - Confusional state [None]
  - Withdrawal syndrome [None]
  - Dysphemia [None]
  - Anxiety [None]
  - Gait disturbance [None]
  - Vertigo [None]
  - Hyperhidrosis [None]
  - Fatigue [None]
  - Functional gastrointestinal disorder [None]
  - Arthralgia [None]
  - Crying [None]
  - Tremor [None]
  - Muscle twitching [None]
  - Pain [None]

NARRATIVE: CASE EVENT DATE: 20180819
